FAERS Safety Report 5685871-3 (Version None)
Quarter: 2008Q1

REPORT INFORMATION
  Report Type: 
  Country: None (occurrence: None)
  Receive Date: 20080328
  Receipt Date: 20070817
  Transmission Date: 20080703
  Serious: No
  Sender: FDA-Public Use
  Company Number: US-BAYER-US-2007-031125

PATIENT
  Age: 36 Year
  Sex: Female
  Weight: 82 kg

DRUGS (5)
  1. MIRENA [Suspect]
     Indication: CONTRACEPTION
     Route: 015
     Dates: start: 20020601, end: 20070905
  2. TRAZODONE HCL [Concomitant]
  3. CLONOPIN [Concomitant]
  4. ACNE CREAMS [Concomitant]
  5. BLEACHING CREAM [Concomitant]

REACTIONS (10)
  - ACNE [None]
  - AMENORRHOEA [None]
  - CHLOASMA [None]
  - DEPRESSION [None]
  - DYSPAREUNIA [None]
  - LIBIDO DECREASED [None]
  - METRORRHAGIA [None]
  - OVARIAN CYST [None]
  - PROCEDURAL COMPLICATION [None]
  - WEIGHT INCREASED [None]
